FAERS Safety Report 25112436 (Version 2)
Quarter: 2025Q2

REPORT INFORMATION
  Report Type: Spontaneous
  Country: US (occurrence: US)
  Receive Date: 20250324
  Receipt Date: 20250404
  Transmission Date: 20250717
  Serious: Yes (Life-Threatening, Hospitalization)
  Sender: TEVA
  Company Number: US-TEVA-VS-3311419

PATIENT
  Age: 70 Year
  Sex: Male

DRUGS (2)
  1. PREDNISONE [Suspect]
     Active Substance: PREDNISONE
     Indication: Antinuclear antibody positive
     Route: 048
  2. PEMBROLIZUMAB [Suspect]
     Active Substance: PEMBROLIZUMAB
     Indication: Malignant melanoma stage II
     Route: 065

REACTIONS (5)
  - Drug ineffective [Unknown]
  - Myocarditis [Unknown]
  - Antinuclear antibody positive [Unknown]
  - Myositis [Unknown]
  - Myasthenia gravis crisis [Unknown]
